FAERS Safety Report 20788222 (Version 2)
Quarter: 2022Q2

REPORT INFORMATION
  Report Type: Spontaneous
  Country: US (occurrence: None)
  Receive Date: 20220505
  Receipt Date: 20220512
  Transmission Date: 20220720
  Serious: No
  Sender: FDA-Public Use
  Company Number: 2022A166377

PATIENT
  Sex: Female
  Weight: 77.1 kg

DRUGS (1)
  1. PULMICORT FLEXHALER [Suspect]
     Active Substance: BUDESONIDE
     Indication: Asthma
     Dosage: 90.0UG UNKNOWN
     Route: 055

REACTIONS (7)
  - Dyspnoea [Unknown]
  - Bronchitis [Unknown]
  - Visual impairment [Unknown]
  - Thinking abnormal [Unknown]
  - Product use complaint [Unknown]
  - Product deposit [Unknown]
  - Device use issue [Unknown]
